FAERS Safety Report 6631098-8 (Version None)
Quarter: 2010Q1

REPORT INFORMATION
  Report Type: 
  Country: None (occurrence: None)
  Receive Date: 20100309
  Receipt Date: 20100222
  Transmission Date: 20100710
  Serious: Yes (Other)
  Sender: FDA-Public Use
  Company Number: TRT-01954

PATIENT
  Age: 19 Year
  Sex: Female

DRUGS (5)
  1. TRETINOIN [Suspect]
     Indication: ACNE
     Dosage: TOPICAL
     Route: 061
  2. MINOCYCLINE HCL [Suspect]
     Indication: ACNE
     Dosage: 50 TO 100MG, BID, ORAL
     Route: 048
  3. BENZAMYCIN [Suspect]
     Indication: ACNE
     Dosage: TOPICAL
     Route: 061
  4. BENZOYL PEROXIDE 10% GEL [Suspect]
     Indication: ACNE
     Dosage: TOPICAL
     Route: 061
  5. TRIPHASIC ETHINYL ESTRADIOL/NORGESTIMATE ORAL CONTRACEPTIVE PILLS [Suspect]
     Indication: ACNE
     Dosage: ORAL
     Route: 048

REACTIONS (2)
  - ASPARTATE AMINOTRANSFERASE INCREASED [None]
  - POLYARTERITIS NODOSA [None]
